FAERS Safety Report 5050104-8 (Version None)
Quarter: 2006Q3

REPORT INFORMATION
  Report Type: 
  Country: None (occurrence: None)
  Receive Date: 20060713
  Receipt Date: 20060703
  Transmission Date: 20061208
  Serious: Yes (Hospitalization)
  Sender: FDA-Public Use
  Company Number: FR-JNJFOC-20060500664

PATIENT
  Age: 47 Year
  Sex: Female

DRUGS (6)
  1. REMICADE [Suspect]
     Route: 042
  2. REMICADE [Suspect]
     Indication: ANKYLOSING SPONDYLITIS
     Dosage: THIRD INFUSION
     Route: 042
  3. EFFERALGAN [Concomitant]
     Indication: ANKYLOSING SPONDYLITIS
     Route: 048
  4. TAREG [Concomitant]
     Indication: HYPERTENSION
     Route: 048
  5. MOPRAL [Concomitant]
     Route: 048
  6. APRANAX [Concomitant]
     Indication: ANKYLOSING SPONDYLITIS
     Route: 048

REACTIONS (7)
  - AUTOIMMUNE DISORDER [None]
  - DYSAESTHESIA [None]
  - FALL [None]
  - HAEMARTHROSIS [None]
  - MENINGITIS ASEPTIC [None]
  - OSTEONECROSIS [None]
  - PARAESTHESIA [None]
